FAERS Safety Report 5627001-X (Version None)
Quarter: 2008Q1

REPORT INFORMATION
  Report Type: 
  Country: None (occurrence: None)
  Receive Date: 20080124
  Receipt Date: 20070320
  Transmission Date: 20080703
  Serious: Yes (Hospitalization)
  Sender: FDA-Public Use
  Company Number: GXBR2007US00784

PATIENT
  Age: 76 Year
  Sex: Male
  Weight: 83.9 kg

DRUGS (9)
  1. ISONIAZID [Suspect]
     Indication: INFECTION
     Dosage: 300 MG, QD, ORAL
     Route: 048
     Dates: start: 20070101, end: 20070201
  2. FLOMAX [Concomitant]
  3. UROCIT-K (POTASSIUM CITRATE) [Concomitant]
  4. LIPITOR /NET/ (ATORVASTATIN CALCIUM) [Concomitant]
  5. OXYBUTYNIN CHLORIDE [Concomitant]
  6. VITAMIN B6 [Concomitant]
  7. HYDROMORPHONE HCL [Concomitant]
  8. FENTANYL [Concomitant]
  9. EPOGEN [Concomitant]

REACTIONS (5)
  - ANOREXIA [None]
  - ASTHENIA [None]
  - HEPATOCELLULAR INJURY [None]
  - LIVER FUNCTION TEST ABNORMAL [None]
  - YELLOW SKIN [None]
